FAERS Safety Report 8987038 (Version 3)
Quarter: 2013Q1

REPORT INFORMATION
  Report Type: Spontaneous
  Country: US (occurrence: US)
  Receive Date: 20121227
  Receipt Date: 20130328
  Transmission Date: 20140127
  Serious: Yes (Hospitalization)
  Sender: FDA-Public Use
  Company Number: US-BIOGENIDEC-2012BI063645

PATIENT
  Sex: Female

DRUGS (4)
  1. TYSABRI [Suspect]
     Indication: MULTIPLE SCLEROSIS
     Route: 042
     Dates: start: 20080407, end: 20121102
  2. MVI [Concomitant]
  3. HYDROCODONE [Concomitant]
  4. NEURONTIN [Concomitant]

REACTIONS (3)
  - Urinary tract infection [Recovered/Resolved]
  - Drug specific antibody present [Unknown]
  - Decubitus ulcer [Not Recovered/Not Resolved]
